FAERS Safety Report 7477648-3 (Version None)
Quarter: 2011Q2

REPORT INFORMATION
  Report Type: 
  Country: None (occurrence: None)
  Receive Date: 20110513
  Receipt Date: 20110405
  Transmission Date: 20111010
  Serious: Yes (Hospitalization, Other)
  Sender: FDA-Public Use
  Company Number: US-BAYER-201040517NA

PATIENT
  Age: 24 Year
  Sex: Female
  Weight: 74.83 kg

DRUGS (18)
  1. ZOLMITRIPTAN [Concomitant]
     Dosage: 5 MG, UNK
     Route: 045
  2. LAMICTAL [Concomitant]
  3. LAMOTRIGINE [Concomitant]
     Indication: MIGRAINE
     Dosage: 25 MG, UNK
     Route: 048
  4. FENTANYL [Concomitant]
     Dosage: 0.05 MG, UNK
     Route: 042
  5. YASMIN [Suspect]
     Indication: ORAL CONTRACEPTION
     Dosage: UNK
     Route: 048
     Dates: start: 20050101, end: 20080101
  6. ZOLMITRIPTAN [Concomitant]
     Dosage: UNK
     Dates: start: 20080101
  7. ZOFRAN [Concomitant]
     Dosage: UNK
     Dates: start: 20081028, end: 20081104
  8. HEPARIN [Concomitant]
     Dosage: 5000 U, UNK
     Route: 058
  9. TORADOL [Concomitant]
  10. CYCLOBENZAPRINE [Concomitant]
     Indication: MIGRAINE
     Dosage: 10 MG, UNK
     Route: 048
  11. UNASYN [Concomitant]
     Dosage: 1.5 G, UNK
     Route: 042
  12. YAZ [Suspect]
     Indication: ORAL CONTRACEPTION
     Dosage: UNK UNK, QD
     Route: 048
     Dates: start: 20050101, end: 20080101
  13. BENADRYL CODEIN [Concomitant]
     Dosage: UNK
     Dates: start: 20081028, end: 20081104
  14. FLEXERIL [Concomitant]
  15. BENADRYL [Concomitant]
     Indication: PRURITUS
     Dosage: 25 MG, UNK
  16. VICODIN [Concomitant]
     Indication: ABDOMINAL PAIN
     Dosage: 500/5 MG
     Route: 048
  17. DILAUDID [Concomitant]
     Indication: PAIN
     Dosage: UNK
     Dates: start: 20081028, end: 20081104
  18. MORPHINE [Concomitant]

REACTIONS (5)
  - SYNCOPE [None]
  - ABDOMINAL PAIN [None]
  - CHOLELITHIASIS [None]
  - PANCREATITIS [None]
  - DIARRHOEA [None]
